FAERS Safety Report 4313289-4 (Version None)
Quarter: 2004Q1

REPORT INFORMATION
  Report Type: 
  Country: None (occurrence: None)
  Receive Date: 20040305
  Receipt Date: 20040305
  Transmission Date: 20041129
  Serious: No
  Sender: FDA-Public Use
  Company Number: None

PATIENT
  Sex: Female
  Weight: 58.514 kg

DRUGS (12)
  1. GEMCITABINE /LILLY [Suspect]
     Indication: LUNG NEOPLASM MALIGNANT
     Dosage: 128 MG IV Q 7 DAY
     Route: 042
     Dates: start: 20040220
  2. VINORELBINE/GLAXO [Suspect]
     Indication: LUNG NEOPLASM MALIGNANT
     Dosage: 40 MG IV Q 7 DAY
     Route: 042
     Dates: start: 20040220
  3. ONDANSETRON HCL [Concomitant]
  4. DEXAMETHASONE [Concomitant]
  5. DOCUSATE [Concomitant]
  6. ISONIAZID [Concomitant]
  7. PYRIDOXINE [Concomitant]
  8. FLOVENT [Concomitant]
  9. ACETAMINOPHEN W/ CODEINE [Concomitant]
  10. ... [Concomitant]
  11. COMBIVENT [Concomitant]
  12. LACTULOSE [Concomitant]

REACTIONS (2)
  - CHEST DISCOMFORT [None]
  - RASH [None]
